FAERS Safety Report 6033169-6 (Version None)
Quarter: 2009Q1

REPORT INFORMATION
  Report Type: 
  Country: None (occurrence: None)
  Receive Date: 20090109
  Receipt Date: 20090105
  Transmission Date: 20090719
  Serious: Yes (Other)
  Sender: FDA-Public Use
  Company Number: GB-MERCK-0901GBR00006

PATIENT
  Age: 68 Year
  Sex: Female

DRUGS (3)
  1. SINGULAIR [Suspect]
     Indication: COUGH
     Route: 048
     Dates: start: 20081210, end: 20081210
  2. CIPROFLOXACIN [Concomitant]
     Indication: LOWER RESPIRATORY TRACT INFECTION
     Route: 048
     Dates: start: 20081128, end: 20081205
  3. PREDNISOLONE [Concomitant]
     Indication: LOWER RESPIRATORY TRACT INFECTION
     Route: 048
     Dates: start: 20081128, end: 20081202

REACTIONS (8)
  - AGITATION [None]
  - DIARRHOEA [None]
  - DRY MOUTH [None]
  - FATIGUE [None]
  - IRRITABILITY [None]
  - NAUSEA [None]
  - PRURITUS [None]
  - URTICARIA [None]
